FAERS Safety Report 23754334 (Version 3)
Quarter: 2024Q4

REPORT INFORMATION
  Report Type: Spontaneous
  Country: ES (occurrence: ES)
  Receive Date: 20240418
  Receipt Date: 20241230
  Transmission Date: 20250115
  Serious: Yes (Hospitalization)
  Sender: BAUSCH AND LOMB
  Company Number: ES-JNJFOC-20240419620

PATIENT
  Age: 68 Year
  Sex: Male
  Weight: 74.4 kg

DRUGS (14)
  1. DEXAMETHASONE [Suspect]
     Active Substance: DEXAMETHASONE
     Indication: Plasma cell myeloma
     Route: 065
  2. DARATUMUMAB [Suspect]
     Active Substance: DARATUMUMAB
     Indication: Plasma cell myeloma
     Dosage: ANATOMICAL SITE: LEFT HEMIABDOMEN 15 ML
     Route: 058
     Dates: start: 20240311
  3. DARATUMUMAB [Suspect]
     Active Substance: DARATUMUMAB
     Dosage: ANATOMICAL SITE: RIGHT ABDOMEN 15 ML
     Route: 058
     Dates: start: 20240318
  4. DARATUMUMAB [Suspect]
     Active Substance: DARATUMUMAB
     Dosage: 15ML
     Route: 058
     Dates: start: 20240410
  5. LENALIDOMIDE [Suspect]
     Active Substance: LENALIDOMIDE
     Indication: Plasma cell myeloma
     Route: 065
  6. ACETAMINOPHEN [Concomitant]
     Active Substance: ACETAMINOPHEN
     Indication: Prophylaxis
     Route: 048
     Dates: start: 20240307
  7. ALLOPURINOL [Concomitant]
     Active Substance: ALLOPURINOL
     Indication: Prophylaxis
     Route: 048
     Dates: start: 20240307
  8. ASPIRIN [Concomitant]
     Active Substance: ASPIRIN
     Indication: Prophylaxis
     Route: 048
     Dates: start: 20240307
  9. METOCLOPRAMIDE [Concomitant]
     Active Substance: METOCLOPRAMIDE
     Indication: Prophylaxis
     Route: 048
     Dates: start: 20240307
  10. VALACYCLOVIR [Concomitant]
     Active Substance: VALACYCLOVIR HYDROCHLORIDE
     Indication: Prophylaxis
     Route: 048
     Dates: start: 20240307
  11. SULFAMETHOXAZOLE\TRIMETHOPRIM [Concomitant]
     Active Substance: SULFAMETHOXAZOLE\TRIMETHOPRIM
     Indication: Prophylaxis
     Route: 048
     Dates: start: 20240307
  12. BUDESONIDE [Concomitant]
     Active Substance: BUDESONIDE
     Indication: Asthma
     Route: 065
     Dates: start: 20120514
  13. FORMOTEROL [Concomitant]
     Active Substance: FORMOTEROL
     Indication: Asthma
     Route: 065
     Dates: start: 20120514
  14. TERBUTALINE [Concomitant]
     Active Substance: TERBUTALINE
     Indication: Asthma
     Route: 065
     Dates: start: 20180413

REACTIONS (2)
  - Hypotension [Recovered/Resolved]
  - Pyrexia [Recovered/Resolved]

NARRATIVE: CASE EVENT DATE: 20240323
